FAERS Safety Report 5580750-4 (Version None)
Quarter: 2008Q1

REPORT INFORMATION
  Report Type: 
  Country: None (occurrence: None)
  Receive Date: 20080103
  Receipt Date: 20071228
  Transmission Date: 20080703
  Serious: Yes (Death)
  Sender: FDA-Public Use
  Company Number: CN-PFIZER INC-2007108275

PATIENT
  Sex: Male

DRUGS (6)
  1. SOLU-MEDROL [Suspect]
     Indication: ARTHRALGIA
     Route: 050
     Dates: start: 20071226, end: 20071226
  2. SOLU-MEDROL [Suspect]
     Indication: MUSCULOSKELETAL PAIN
  3. HYALURONIDASE [Suspect]
     Indication: ARTHRALGIA
     Route: 050
     Dates: start: 20071226, end: 20071226
  4. HYALURONIDASE [Suspect]
     Indication: MUSCULOSKELETAL PAIN
  5. TRIAMCINOLONE ACETONIDE [Suspect]
     Indication: ARTHRALGIA
     Route: 050
     Dates: start: 20071226, end: 20071226
  6. TRIAMCINOLONE ACETONIDE [Suspect]
     Indication: MUSCULOSKELETAL PAIN

REACTIONS (1)
  - DEATH [None]
